FAERS Safety Report 10251902 (Version 2)
Quarter: 2014Q2

REPORT INFORMATION
  Report Type: Spontaneous
  Country: GB (occurrence: GB)
  Receive Date: 20140623
  Receipt Date: 20140627
  Transmission Date: 20141212
  Serious: Yes (Other)
  Sender: FDA-Public Use
  Company Number: GB-009507513-1406GBR010004

PATIENT
  Age: 55 Year
  Sex: Male

DRUGS (1)
  1. JANUMET [Suspect]
     Dosage: UNK
     Route: 048

REACTIONS (2)
  - Laryngeal cancer [Unknown]
  - Dysphagia [Unknown]
